FAERS Safety Report 8859435 (Version 2)
Quarter: 2012Q4

REPORT INFORMATION
  Report Type: 
  Country: CA (occurrence: CA)
  Receive Date: 20121024
  Receipt Date: 20121212
  Transmission Date: 20130627
  Serious: Yes (Other)
  Sender: FDA-Public Use
  Company Number: CA-ROCHE-1146314

PATIENT
  Age: 66 Year
  Sex: Female
  Weight: 101 kg

DRUGS (13)
  1. XOLAIR [Suspect]
     Indication: ASTHMA
     Dosage: BIW
     Route: 058
     Dates: start: 20090813
  2. XOLAIR [Suspect]
     Route: 058
     Dates: start: 20091026
  3. XOLAIR [Suspect]
     Route: 058
     Dates: start: 20091109
  4. XOLAIR [Suspect]
     Route: 058
     Dates: start: 20091221
  5. XOLAIR [Suspect]
     Route: 058
     Dates: start: 20100301
  6. XOLAIR [Suspect]
     Route: 058
     Dates: start: 20100316
  7. XOLAIR [Suspect]
     Route: 058
     Dates: start: 20100329
  8. XOLAIR [Suspect]
     Route: 058
     Dates: start: 20110428
  9. PREDNISONE [Concomitant]
     Route: 065
     Dates: start: 20100421
  10. PREDNISONE [Concomitant]
     Route: 065
     Dates: end: 20100430
  11. PREDNISONE [Concomitant]
     Route: 065
     Dates: start: 20100501
  12. CORTISONE [Concomitant]
     Route: 065
     Dates: start: 20111030, end: 20111112
  13. REACTINE (CANADA) [Concomitant]

REACTIONS (24)
  - Pneumonia pseudomonas aeruginosa [Unknown]
  - Sinusitis [Unknown]
  - Bronchial disorder [Recovered/Resolved]
  - Dyspnoea [Unknown]
  - Sneezing [Unknown]
  - Blood pressure [Unknown]
  - Ill-defined disorder [Unknown]
  - Dysphonia [Unknown]
  - Anxiety [Unknown]
  - Bronchial disorder [Unknown]
  - Throat irritation [Unknown]
  - Vomiting [Unknown]
  - Sense of oppression [Unknown]
  - Chest discomfort [Unknown]
  - Burning sensation [Unknown]
  - Weight increased [Unknown]
  - Cough [Unknown]
  - Fatigue [Unknown]
  - Somnolence [Unknown]
  - Hypersensitivity [Unknown]
  - Headache [Unknown]
  - Asthma [Unknown]
  - Respiratory tract irritation [Recovered/Resolved]
  - Bronchospasm [Recovered/Resolved]
